FAERS Safety Report 7602968-9 (Version None)
Quarter: 2011Q2

REPORT INFORMATION
  Report Type: 
  Country: None (occurrence: None)
  Receive Date: 20110630
  Receipt Date: 20110616
  Transmission Date: 20111010
  Serious: Yes (Death, Other)
  Sender: FDA-Public Use
  Company Number: FK201101197

PATIENT
  Age: 75 Year
  Sex: Male

DRUGS (3)
  1. BACTRIM [Concomitant]
  2. METHYLPREDNISOLONE SODIUM SUCCINATE [Suspect]
     Indication: STEROID THERAPY
     Dosage: 1 GM, DAILY X 3 DAYS,
  3. PREDNISOLONE [Suspect]
     Indication: STEROID THERAPY
     Dosage: 40 MG, PER DAY X 14 DAYS,; 35 MG, DAILY-TAPERED BY 5MG/DAY Q2WEEK TO 20MG,

REACTIONS (3)
  - SEPSIS [None]
  - MYCOBACTERIAL INFECTION [None]
  - RESPIRATORY FAILURE [None]
